FAERS Safety Report 7954811-6 (Version None)
Quarter: 2011Q4

REPORT INFORMATION
  Report Type: 
  Country: None (occurrence: None)
  Receive Date: 20111202
  Receipt Date: 20111117
  Transmission Date: 20120403
  Serious: Yes (Hospitalization)
  Sender: FDA-Public Use
  Company Number: IN-ROCHE-1014072

PATIENT
  Age: 45 Year
  Sex: Female
  Weight: 67.5 kg

DRUGS (5)
  1. ALISPORIVIR [Suspect]
     Indication: HEPATITIS C
     Route: 048
     Dates: start: 20110225, end: 20110303
  2. COPEGUS [Suspect]
     Indication: HEPATITIS C
     Route: 048
     Dates: start: 20110225, end: 20110811
  3. FOLVITE [Concomitant]
     Dates: start: 20110620
  4. MECOBALAMIN [Concomitant]
     Dates: start: 20110620, end: 20111001
  5. ALISPORIVIR [Suspect]
     Route: 048
     Dates: start: 20110304

REACTIONS (1)
  - CALCULUS URETERIC [None]
